FAERS Safety Report 9374769 (Version 1)
Quarter: 2013Q2

REPORT INFORMATION
  Report Type: Spontaneous
  Country: CH (occurrence: CH)
  Receive Date: 20130628
  Receipt Date: 20130628
  Transmission Date: 20140414
  Serious: Yes (Life-Threatening, Hospitalization)
  Sender: FDA-Public Use
  Company Number: CH-JNJFOC-20130608419

PATIENT
  Age: 57 Year
  Sex: Male

DRUGS (18)
  1. FENTANYL CITRATE [Suspect]
     Indication: PRODUCT USED FOR UNKNOWN INDICATION
     Dosage: DOSAGE: AS NECESSARY
     Route: 040
     Dates: start: 20130510
  2. DUROGESIC [Suspect]
     Indication: PRODUCT USED FOR UNKNOWN INDICATION
     Route: 062
     Dates: start: 20130510
  3. CEFEPIME HYDROCHLORIDE [Suspect]
     Indication: PRODUCT USED FOR UNKNOWN INDICATION
     Route: 041
     Dates: start: 20130531, end: 20130603
  4. CLEXANE [Suspect]
     Indication: PRODUCT USED FOR UNKNOWN INDICATION
     Route: 058
     Dates: start: 20130529, end: 20130531
  5. DAFALGAN [Suspect]
     Indication: PRODUCT USED FOR UNKNOWN INDICATION
     Route: 048
     Dates: start: 20130510, end: 20130517
  6. DIFLUCAN [Suspect]
     Indication: PRODUCT USED FOR UNKNOWN INDICATION
     Route: 041
     Dates: start: 20130522, end: 20130530
  7. HEPARIN [Suspect]
     Indication: PRODUCT USED FOR UNKNOWN INDICATION
     Dosage: DOSAGE :AS NECESSARY
     Route: 041
     Dates: start: 201305
  8. LASIX [Suspect]
     Indication: PRODUCT USED FOR UNKNOWN INDICATION
     Dosage: DOSAGE :AS NECESSARY
     Route: 040
     Dates: start: 20130511
  9. METRONIDAZOL [Suspect]
     Indication: PRODUCT USED FOR UNKNOWN INDICATION
     Route: 041
     Dates: start: 20130531, end: 20130603
  10. NOVALGIN [Suspect]
     Indication: PRODUCT USED FOR UNKNOWN INDICATION
     Route: 065
     Dates: start: 20130526, end: 20130530
  11. NOVORAPID [Suspect]
     Indication: PRODUCT USED FOR UNKNOWN INDICATION
     Route: 041
     Dates: start: 20130508
  12. PANTOZOL [Suspect]
     Indication: PRODUCT USED FOR UNKNOWN INDICATION
     Route: 041
     Dates: start: 20130518
  13. PANTOZOL [Suspect]
     Indication: PRODUCT USED FOR UNKNOWN INDICATION
     Route: 041
     Dates: start: 20130506, end: 20130510
  14. PERFALGAN [Suspect]
     Indication: PRODUCT USED FOR UNKNOWN INDICATION
     Route: 041
     Dates: start: 20130518, end: 20130525
  15. PRIMPERAN [Suspect]
     Indication: PRODUCT USED FOR UNKNOWN INDICATION
     Route: 040
     Dates: start: 20130505
  16. SOLDACTONE [Suspect]
     Indication: PRODUCT USED FOR UNKNOWN INDICATION
     Route: 041
     Dates: start: 20130518, end: 20130527
  17. TAZOBAC [Suspect]
     Indication: PRODUCT USED FOR UNKNOWN INDICATION
     Route: 041
     Dates: start: 20130511, end: 20130531
  18. VANCOCIN [Suspect]
     Indication: PRODUCT USED FOR UNKNOWN INDICATION
     Dosage: DOSAGE: AS NECESSARY
     Route: 041
     Dates: start: 20130519, end: 20130524

REACTIONS (4)
  - Agranulocytosis [Not Recovered/Not Resolved]
  - Leukopenia [Not Recovered/Not Resolved]
  - Monocytopenia [Not Recovered/Not Resolved]
  - C-reactive protein increased [Unknown]
